FAERS Safety Report 6549789-6 (Version None)
Quarter: 2010Q1

REPORT INFORMATION
  Report Type: 
  Country: None (occurrence: None)
  Receive Date: 20100125
  Receipt Date: 20100118
  Transmission Date: 20100710
  Serious: Yes (Hospitalization, Other)
  Sender: FDA-Public Use
  Company Number: US-TEVA-221246USA

PATIENT
  Age: 55 Year
  Sex: Female

DRUGS (6)
  1. ETHAMBUTOL HYDROCHLORIDE TABLET 400MG [Suspect]
     Indication: PULMONARY TUBERCULOSIS
  2. ISONIAZID [Suspect]
     Indication: PULMONARY TUBERCULOSIS
  3. PYRAZINAMIDE [Suspect]
     Indication: PULMONARY TUBERCULOSIS
  4. RIFAMPICIN [Suspect]
     Indication: PULMONARY TUBERCULOSIS
  5. MOXIFLOXACIN HCL [Suspect]
     Indication: PULMONARY TUBERCULOSIS
  6. STREPTOMYCIN [Suspect]
     Indication: PULMONARY TUBERCULOSIS

REACTIONS (1)
  - DRUG RASH WITH EOSINOPHILIA AND SYSTEMIC SYMPTOMS [None]
